FAERS Safety Report 24814808 (Version 1)
Quarter: 2025Q1

REPORT INFORMATION
  Report Type: Spontaneous
  Country: US (occurrence: US)
  Receive Date: 20250107
  Receipt Date: 20250107
  Transmission Date: 20250409
  Serious: Yes (Other)
  Sender: CIPLA
  Company Number: US-MLMSERVICE-20241226-PI323944-00120-1

PATIENT

DRUGS (1)
  1. DICLOFENAC [Suspect]
     Active Substance: DICLOFENAC
     Indication: Back pain
     Dosage: 75 MILLIGRAM, BID (EVERY 12 HOURS) (FOR MANY YEARS, TWICE DAILY)
     Route: 065

REACTIONS (2)
  - Small intestinal stenosis [Unknown]
  - Intestinal diaphragm disease [Unknown]
